FAERS Safety Report 16203767 (Version 1)
Quarter: 2019Q2

REPORT INFORMATION
  Report Type: Spontaneous
  Country: US (occurrence: US)
  Receive Date: 20190416
  Receipt Date: 20190416
  Transmission Date: 20190711
  Serious: Yes (Other)
  Sender: FDA-Public Use
  Company Number: US-HIKMA PHARMACEUTICALS USA INC.-US-H14001-19-02312

PATIENT
  Age: 2 Year
  Sex: Female

DRUGS (1)
  1. KETAMINE [Suspect]
     Active Substance: KETAMINE
     Indication: SEDATIVE THERAPY
     Route: 030

REACTIONS (5)
  - Salivary hypersecretion [Recovered/Resolved]
  - Sedation complication [Recovered/Resolved]
  - Medication error [Recovered/Resolved]
  - Apnoea [Recovered/Resolved]
  - Accidental overdose [Recovered/Resolved]
